FAERS Safety Report 25747292 (Version 1)
Quarter: 2025Q3

REPORT INFORMATION
  Report Type: Report from Study
  Country: US (occurrence: US)
  Receive Date: 20250901
  Receipt Date: 20250901
  Transmission Date: 20251021
  Serious: Yes (Other)
  Sender: MALLINCKRODT
  Company Number: US-MALLINCKRODT-MNK202500643

PATIENT
  Age: 68 Year
  Sex: Female

DRUGS (3)
  1. CORTICOTROPIN [Suspect]
     Active Substance: CORTICOTROPIN
     Indication: Corneal disorder
     Dosage: 80 UNITS
     Route: 058
     Dates: start: 20240613
  2. CORTICOTROPIN [Suspect]
     Active Substance: CORTICOTROPIN
     Indication: Pemphigoid
  3. PREDNISONE [Suspect]
     Active Substance: PREDNISONE
     Indication: Eye infection

REACTIONS (11)
  - Retinitis [Unknown]
  - Retinal disorder [Unknown]
  - Diabetes mellitus [Unknown]
  - Inflammation [Unknown]
  - Skin irritation [Unknown]
  - Eye disorder [Recovering/Resolving]
  - Eyelid disorder [Unknown]
  - Photophobia [Recovering/Resolving]
  - Diplopia [Unknown]
  - Back pain [Unknown]
  - Eye infection [Unknown]
